FAERS Safety Report 8880516 (Version 1)
Quarter: 2012Q4

REPORT INFORMATION
  Report Type: 
  Country: DE (occurrence: DE)
  Receive Date: 20121031
  Receipt Date: 20121031
  Transmission Date: 20130627
  Serious: Yes (Other)
  Sender: FDA-Public Use
  Company Number: DE-ASTRAZENECA-2012SE80551

PATIENT
  Age: 90 Year
  Sex: Male

DRUGS (6)
  1. ATACAND [Suspect]
     Route: 048
     Dates: start: 201209
  2. ATACAND [Suspect]
     Route: 048
     Dates: start: 20121018
  3. ATACAND PLUS [Suspect]
     Dosage: 16 MG/12.5 MG DAILY IN THE MORNING
     Route: 048
     Dates: start: 201209, end: 20121018
  4. CATAPRESAN [Concomitant]
  5. NEBILET [Concomitant]
  6. RISPERIDON [Concomitant]

REACTIONS (3)
  - Circulatory collapse [Unknown]
  - Hypertension [Unknown]
  - Asthenia [Unknown]
